FAERS Safety Report 5351022-8 (Version None)
Quarter: 2007Q2

REPORT INFORMATION
  Report Type: 
  Country: None (occurrence: None)
  Receive Date: 20070608
  Receipt Date: 20070525
  Transmission Date: 20071010
  Serious: Yes (Other)
  Sender: FDA-Public Use
  Company Number: DE-ROCHE-399302

PATIENT
  Sex: Female
  Weight: 3.4 kg

DRUGS (2)
  1. COPEGUS [Suspect]
     Indication: HEPATITIS C
     Dates: start: 20040101, end: 20040701
  2. PEGASYS [Suspect]
     Indication: HEPATITIS C
     Dates: start: 20040101, end: 20040701

REACTIONS (1)
  - HAEMANGIOMA CONGENITAL [None]
